FAERS Safety Report 16657020 (Version 4)
Quarter: 2019Q4

REPORT INFORMATION
  Report Type: Spontaneous
  Country: US (occurrence: US)
  Receive Date: 20190801
  Receipt Date: 20191108
  Transmission Date: 20200122
  Serious: No
  Sender: FDA-Public Use
  Company Number: US-PFIZER INC-2019326454

PATIENT
  Age: 56 Year
  Sex: Female
  Weight: 88 kg

DRUGS (3)
  1. LYRICA [Suspect]
     Active Substance: PREGABALIN
     Dosage: 50 MG, 1-2 X DAY/  10 MG X 2/DAY (STRIKE OFF)
     Dates: start: 20190819
  2. FAMOTIDINE. [Concomitant]
     Active Substance: FAMOTIDINE
     Indication: HIATUS HERNIA
     Dosage: 40 MG, 2X/DAY
     Route: 048
     Dates: start: 2012
  3. LYRICA [Suspect]
     Active Substance: PREGABALIN
     Indication: FIBROMYALGIA
     Dosage: 100 MG, 3X/DAY (TWO 50 MG CAPSULES THREE TIMES A DAY)
     Route: 048
     Dates: start: 20190705

REACTIONS (6)
  - Peripheral swelling [Recovered/Resolved]
  - Gluten sensitivity [Recovered/Resolved]
  - Drug hypersensitivity [Recovered/Resolved]
  - Weight decreased [Unknown]
  - Pain [Unknown]
  - Pruritus [Unknown]

NARRATIVE: CASE EVENT DATE: 201907
